FAERS Safety Report 12231855 (Version 1)
Quarter: 2016Q2

REPORT INFORMATION
  Report Type: Spontaneous
  Country: US (occurrence: US)
  Receive Date: 20160401
  Receipt Date: 20160401
  Transmission Date: 20160815
  Serious: No
  Sender: FDA-Public Use
  Company Number: US-BAYER-2016-056195

PATIENT
  Age: 64 Year
  Sex: Male
  Weight: 96.59 kg

DRUGS (2)
  1. MIRALAX [Suspect]
     Active Substance: POLYETHYLENE GLYCOL 3350
     Indication: COLONOSCOPY
     Dosage: 4 DF, ONCE
     Route: 048
     Dates: start: 201603
  2. POTASSIUM [Concomitant]
     Active Substance: POTASSIUM

REACTIONS (1)
  - Product use issue [None]
